FAERS Safety Report 5107255-9 (Version None)
Quarter: 2006Q3

REPORT INFORMATION
  Report Type: 
  Country: None (occurrence: None)
  Receive Date: 20060914
  Receipt Date: 20060831
  Transmission Date: 20061208
  Serious: Yes (Hospitalization, Disabling, Other)
  Sender: FDA-Public Use
  Company Number: 2006AP000305

PATIENT
  Age: 39 Year
  Sex: Female

DRUGS (3)
  1. PAROXETINE HCL [Suspect]
     Indication: DEPRESSION
     Dosage: 30 MG' QD; PO
     Route: 048
     Dates: start: 20060201, end: 20060407
  2. RAMIPRIL [Concomitant]
  3. ACETAMINOPHEN [Concomitant]

REACTIONS (14)
  - ABNORMAL SENSATION IN EYE [None]
  - ACTIVITIES OF DAILY LIVING IMPAIRED [None]
  - AMNESIA [None]
  - ANXIETY [None]
  - CONDITION AGGRAVATED [None]
  - DEPRESSION [None]
  - DEPRESSION SUICIDAL [None]
  - DISTURBANCE IN ATTENTION [None]
  - DRUG INEFFECTIVE [None]
  - DRY EYE [None]
  - GLARE [None]
  - SKIN EXFOLIATION [None]
  - VISION BLURRED [None]
  - VISUAL DISTURBANCE [None]
